FAERS Safety Report 20959354 (Version 1)
Quarter: 2022Q2

REPORT INFORMATION
  Report Type: Report from Study
  Country: US (occurrence: US)
  Receive Date: 20220614
  Receipt Date: 20220614
  Transmission Date: 20220721
  Serious: Yes (Disabling)
  Sender: FDA-Public Use
  Company Number: US-SA-SAC20220610001270

PATIENT
  Sex: Female

DRUGS (1)
  1. TERIFLUNOMIDE [Suspect]
     Active Substance: TERIFLUNOMIDE
     Dosage: UNK

REACTIONS (1)
  - Walking aid user [Unknown]
